FAERS Safety Report 15048269 (Version 1)
Quarter: 2018Q3

REPORT INFORMATION
  Report Type: Spontaneous
  Country: US (occurrence: US)
  Receive Date: 20180622
  Receipt Date: 20180622
  Transmission Date: 20181010
  Serious: No
  Sender: FDA-Public Use
  Company Number: US-TEVA-2018-US-913580

PATIENT
  Sex: Female

DRUGS (1)
  1. CLOTRIMAZOLE TEVA [Suspect]
     Active Substance: CLOTRIMAZOLE

REACTIONS (3)
  - Drug ineffective [Unknown]
  - Condition aggravated [Unknown]
  - Irritability [None]
